FAERS Safety Report 9749315 (Version 3)
Quarter: 2014Q1

REPORT INFORMATION
  Report Type: Spontaneous
  Country: US (occurrence: US)
  Receive Date: 20131212
  Receipt Date: 20140312
  Transmission Date: 20141002
  Serious: Yes (Other)
  Sender: FDA-Public Use
  Company Number: US-INCYTE CORPORATION-2013IN002644

PATIENT
  Age: 74 Year
  Sex: Male
  Weight: 81 kg

DRUGS (11)
  1. JAKAFI [Suspect]
     Indication: MYELOFIBROSIS
     Dosage: 10 MG, BID
     Route: 048
     Dates: start: 20131008
  2. PLAVIX [Concomitant]
  3. LEVOTHYROXINE [Concomitant]
  4. AGRELIN [Concomitant]
  5. LEVETIRACETAM [Concomitant]
  6. ASPIRIN [Concomitant]
     Dosage: 81 MG, UNK
  7. GABAPENTIN [Concomitant]
  8. FLEXERIL                           /00428402/ [Concomitant]
  9. VITAMIN B-12 [Concomitant]
  10. VITAMIN D                          /00107901/ [Concomitant]
  11. ARANESP [Concomitant]

REACTIONS (2)
  - Anaemia [Not Recovered/Not Resolved]
  - Platelet count increased [Not Recovered/Not Resolved]
